FAERS Safety Report 4546739-9 (Version None)
Quarter: 2005Q1

REPORT INFORMATION
  Report Type: 
  Country: None (occurrence: None)
  Receive Date: 20050106
  Receipt Date: 20041213
  Transmission Date: 20050727
  Serious: Yes (Hospitalization)
  Sender: FDA-Public Use
  Company Number: JP-ABBOTT-04P-087-0283687-00

PATIENT
  Sex: Female

DRUGS (4)
  1. KLARICID [Suspect]
     Indication: SINUSITIS
     Route: 048
     Dates: start: 20040723, end: 20040801
  2. KLARICID [Suspect]
     Route: 048
     Dates: start: 20040621, end: 20040721
  3. PEMIROLAST POTASSIUM [Concomitant]
     Indication: SINUSITIS
     Route: 048
     Dates: start: 20040621, end: 20040721
  4. PEMIROLAST POTASSIUM [Concomitant]
     Route: 048
     Dates: start: 20040723, end: 20040801

REACTIONS (2)
  - HENOCH-SCHONLEIN PURPURA [None]
  - NEPHRITIS [None]
